FAERS Safety Report 19599532 (Version 2)
Quarter: 2021Q3

REPORT INFORMATION
  Report Type: Report from Study
  Country: BG (occurrence: BG)
  Receive Date: 20210722
  Receipt Date: 20210728
  Transmission Date: 20211014
  Serious: Yes (Death)
  Sender: FDA-Public Use
  Company Number: NVSC2021BG164672

PATIENT
  Age: 77 Year
  Sex: Female
  Weight: 60 kg

DRUGS (2)
  1. DENOSUMAB [Suspect]
     Active Substance: DENOSUMAB
     Indication: BREAST CANCER
     Dosage: UNK
     Route: 065
     Dates: start: 20210621
  2. KISQALI [Suspect]
     Active Substance: RIBOCICLIB
     Indication: BREAST CANCER
     Dosage: 600 MG, QD
     Route: 048
     Dates: start: 20210621

REACTIONS (4)
  - Death [Fatal]
  - Dysstasia [Unknown]
  - Gait inability [Unknown]
  - General physical health deterioration [Unknown]

NARRATIVE: CASE EVENT DATE: 20210621
